FAERS Safety Report 7657737-0 (Version None)
Quarter: 2011Q3

REPORT INFORMATION
  Report Type: 
  Country: None (occurrence: None)
  Receive Date: 20110804
  Receipt Date: 20110322
  Transmission Date: 20111222
  Serious: No
  Sender: FDA-Public Use
  Company Number: US-BAYER-2011-026353

PATIENT
  Age: 65 Year
  Sex: Male
  Weight: 83.9 kg

DRUGS (2)
  1. ALEVE [Suspect]
     Indication: ARTHRITIS
     Dosage: 440 MG, PRN
     Route: 048
     Dates: start: 20110318, end: 20110322
  2. CRESTOR [Concomitant]
     Dosage: 1 DF, UNK

REACTIONS (1)
  - ARTHRALGIA [None]
